FAERS Safety Report 7083602-6 (Version None)
Quarter: 2010Q4

REPORT INFORMATION
  Report Type: 
  Country: None (occurrence: None)
  Receive Date: 20101103
  Receipt Date: 20101103
  Transmission Date: 20110411
  Serious: Yes (Hospitalization)
  Sender: FDA-Public Use
  Company Number: None

PATIENT
  Age: 48 Year
  Sex: Female
  Weight: 52.6173 kg

DRUGS (2)
  1. BIAXIN [Suspect]
     Indication: EAR INFECTION
     Dosage: 500 MG 3/DAY PO
     Route: 048
     Dates: start: 20100829, end: 20100901
  2. BIAXIN [Suspect]
     Indication: SINUS DISORDER
     Dosage: 500 MG 3/DAY PO
     Route: 048
     Dates: start: 20100829, end: 20100901

REACTIONS (6)
  - DYSGEUSIA [None]
  - DYSPNOEA [None]
  - FLATULENCE [None]
  - HEART RATE INCREASED [None]
  - HOT FLUSH [None]
  - PARAESTHESIA [None]
